FAERS Safety Report 25555651 (Version 3)
Quarter: 2025Q3

REPORT INFORMATION
  Report Type: Spontaneous
  Country: BR (occurrence: BR)
  Receive Date: 20250715
  Receipt Date: 20250806
  Transmission Date: 20251021
  Serious: Yes (Hospitalization, Other)
  Sender: SANOFI AVENTIS
  Company Number: BR-SANOFI-02581750

PATIENT
  Age: 72 Year
  Sex: Female

DRUGS (1)
  1. LANTUS SOLOSTAR [Suspect]
     Active Substance: INSULIN GLARGINE
     Indication: Type 2 diabetes mellitus
     Dosage: 25 IU, QD IN THE MORNING
     Route: 065

REACTIONS (17)
  - Diabetic ketoacidosis [Recovering/Resolving]
  - Pneumonia [Recovering/Resolving]
  - Depressed level of consciousness [Recovering/Resolving]
  - Endotracheal intubation [Recovering/Resolving]
  - Mechanical ventilation [Recovering/Resolving]
  - Sensory loss [Recovering/Resolving]
  - Bradycardia [Recovering/Resolving]
  - Haemodynamic instability [Recovering/Resolving]
  - Haematological infection [Recovering/Resolving]
  - Vomiting [Recovering/Resolving]
  - Dizziness [Recovering/Resolving]
  - Confusional state [Recovering/Resolving]
  - Pyrexia [Recovering/Resolving]
  - Rhinorrhoea [Recovering/Resolving]
  - Blood glucose increased [Recovering/Resolving]
  - Drug dose omission by device [Recovering/Resolving]
  - Device defective [Unknown]

NARRATIVE: CASE EVENT DATE: 20250601
